FAERS Safety Report 7536475-9 (Version None)
Quarter: 2011Q2

REPORT INFORMATION
  Report Type: 
  Country: None (occurrence: None)
  Receive Date: 20110609
  Receipt Date: 20091002
  Transmission Date: 20111010
  Serious: Yes (Other)
  Sender: FDA-Public Use
  Company Number: US-BAYER-200919016NA

PATIENT
  Sex: Female
  Weight: 47.166 kg

DRUGS (20)
  1. MONOPRIL [Concomitant]
  2. ZOCOR [Concomitant]
  3. VALIUM [Concomitant]
  4. MAGNEVIST [Suspect]
     Indication: NUCLEAR MAGNETIC RESONANCE IMAGING
     Dosage: UNK, ONCE
     Dates: start: 20010126, end: 20010126
  5. OMNISCAN [Suspect]
     Dosage: 20 ML, ONCE
     Dates: start: 20030727, end: 20030727
  6. DOXAZOSIN MESYLATE [Concomitant]
  7. NORVASC [Concomitant]
  8. PRAVACHOL [Concomitant]
  9. MULTIHANCE [Suspect]
     Indication: NUCLEAR MAGNETIC RESONANCE IMAGING
  10. OPTIMARK [Suspect]
     Indication: NUCLEAR MAGNETIC RESONANCE IMAGING
  11. FIORICET [Concomitant]
  12. ZYRTEC [Concomitant]
  13. OMNISCAN [Suspect]
     Indication: NUCLEAR MAGNETIC RESONANCE IMAGING
     Dosage: 40 ML, ONCE
     Dates: start: 20030726, end: 20030726
  14. PREMPRO [Concomitant]
  15. MAGNEVIST [Suspect]
     Dosage: UNK, ONCE
     Dates: start: 20020423, end: 20020423
  16. PROHANCE [Suspect]
     Indication: NUCLEAR MAGNETIC RESONANCE IMAGING
  17. PLAVIX [Concomitant]
  18. MAGNEVIST [Suspect]
     Dosage: 20 ML, ONCE
     Dates: start: 20030314, end: 20030314
  19. SYNTHROID [Concomitant]
  20. PREDNISONE [Concomitant]

REACTIONS (23)
  - PAIN [None]
  - GENERAL PHYSICAL HEALTH DETERIORATION [None]
  - SCAR [None]
  - SKIN FIBROSIS [None]
  - RASH PRURITIC [None]
  - SKIN DISCOLOURATION [None]
  - OEDEMA PERIPHERAL [None]
  - MORPHOEA [None]
  - RASH PAPULAR [None]
  - DRY SKIN [None]
  - SKIN PLAQUE [None]
  - EXFOLIATIVE RASH [None]
  - SEBORRHOEIC KERATOSIS [None]
  - MOBILITY DECREASED [None]
  - ANHEDONIA [None]
  - DEPRESSION [None]
  - SKIN INDURATION [None]
  - MUSCLE CONTRACTURE [None]
  - NEPHROGENIC SYSTEMIC FIBROSIS [None]
  - SKIN HYPERTROPHY [None]
  - DEFORMITY [None]
  - EMOTIONAL DISTRESS [None]
  - MUSCULOSKELETAL STIFFNESS [None]
